FAERS Safety Report 4610957-1 (Version None)
Quarter: 2005Q1

REPORT INFORMATION
  Report Type: 
  Country: None (occurrence: None)
  Receive Date: 20050315
  Receipt Date: 20050315
  Transmission Date: 20050727
  Serious: No
  Sender: FDA-Public Use
  Company Number: None

PATIENT
  Sex: Female
  Weight: 58.9676 kg

DRUGS (1)
  1. LIPITOR [Suspect]

REACTIONS (4)
  - NAIL DISCOLOURATION [None]
  - ONYCHOMADESIS [None]
  - PSORIASIS [None]
  - PSORIATIC ARTHROPATHY [None]
